FAERS Safety Report 9601693 (Version 1)
Quarter: 2013Q4

REPORT INFORMATION
  Report Type: Spontaneous
  Country: CH (occurrence: None)
  Receive Date: 20131002
  Receipt Date: 20131002
  Transmission Date: 20140711
  Serious: Yes (Hospitalization)
  Sender: FDA-Public Use
  Company Number: 2013090083

PATIENT
  Age: 68 Year
  Sex: Female

DRUGS (11)
  1. TOREM (TORASEMIDE) [Suspect]
     Dosage: (20 MG, 1 IN 1 D)
     Route: 048
     Dates: end: 20130621
  2. MICARDIS (TELMISARTAN) [Suspect]
     Dosage: (80 MG, 1 IN 1 D)
     Route: 048
     Dates: end: 20130621
  3. ATACAND [Suspect]
     Dosage: (32 MG, 1 IN 1 D)
     Route: 048
     Dates: end: 20130621
  4. HYGROTON [Suspect]
     Dosage: (25 MG, 1 IN 1 D)
     Route: 048
     Dates: end: 20130621
  5. ASPIRIN CARDIO (ACETYLSALICYCLIC ACID) (FILM-COATED TABLET)) [Concomitant]
  6. NEBIVOLOL (NEBIVOLOL) [Concomitant]
  7. AMLODIPINE (AMLODIPINE) [Concomitant]
  8. SORTIS (ATORVASTATIN CALCIUM (FILM-COATED TABLET) ) [Concomitant]
  9. PANTOZOL (PANTOPRAZOLE SODIUM (FILM-COATED TABLET) ) [Concomitant]
  10. METFIN (METFORMIN HYDROCHLORIDE (FILM-COATED TABLET) ) [Concomitant]
  11. NOVOMIX  (INSULIN ASPART, INSULIN ASPART PROTAMINE (CRYSTALINE SOLUTION)) [Concomitant]

REACTIONS (8)
  - Renal failure [None]
  - Renal failure acute [None]
  - Dehydration [None]
  - Gastroenteritis viral [None]
  - Confusional state [None]
  - Inflammation [None]
  - Urinary tract infection [None]
  - Klebsiella infection [None]
